FAERS Safety Report 4283665-7 (Version None)
Quarter: 2004Q1

REPORT INFORMATION
  Report Type: 
  Country: None (occurrence: None)
  Receive Date: 20040129
  Receipt Date: 20040129
  Transmission Date: 20041129
  Serious: No
  Sender: FDA-Public Use
  Company Number: None

PATIENT
  Age: 53 Year
  Sex: Male
  Weight: 113.7168 kg

DRUGS (9)
  1. OXYCONTIN [Suspect]
     Indication: PAIN
     Dosage: 40 MG Q 12 HRS
  2. PERCOCET [Suspect]
     Indication: PAIN
     Dosage: 1-2 TABS Q 4 HRS PRN
  3. LASIX [Concomitant]
  4. THALIDOMIDE [Concomitant]
  5. COMBIVENT MDI [Concomitant]
  6. FLOVENT [Concomitant]
  7. GLYBURIDE [Concomitant]
  8. ZOCOR [Concomitant]
  9. PROTONIX [Concomitant]

REACTIONS (6)
  - BLOOD PH DECREASED [None]
  - COMA [None]
  - COMPRESSION FRACTURE [None]
  - CONFUSIONAL STATE [None]
  - HYPOXIA [None]
  - PCO2 INCREASED [None]
